FAERS Safety Report 5516087-9 (Version None)
Quarter: 2007Q4

REPORT INFORMATION
  Report Type: 
  Country: None (occurrence: None)
  Receive Date: 20071114
  Receipt Date: 20061206
  Transmission Date: 20080405
  Serious: No
  Sender: FDA-Public Use
  Company Number: A0630363A

PATIENT
  Sex: Female

DRUGS (2)
  1. COMMIT [Suspect]
  2. COMMIT [Suspect]

REACTIONS (2)
  - NAUSEA [None]
  - THERMAL BURN [None]
